FAERS Safety Report 5886700-5 (Version None)
Quarter: 2008Q3

REPORT INFORMATION
  Report Type: 
  Country: None (occurrence: None)
  Receive Date: 20080917
  Receipt Date: 20080910
  Transmission Date: 20090109
  Serious: Yes (Death)
  Sender: FDA-Public Use
  Company Number: PHHY2008JP20259

PATIENT
  Sex: Male
  Weight: 52 kg

DRUGS (7)
  1. NEORAL [Suspect]
     Indication: NEPHROTIC SYNDROME
     Dosage: 75 MG PER DAY
     Route: 048
     Dates: start: 20080401, end: 20080825
  2. PREDONINE [Concomitant]
     Indication: NEPHROTIC SYNDROME
     Dosage: 30 MG , RE
     Dates: start: 20080809, end: 20080825
  3. DIOVAN [Concomitant]
     Dosage: 80 MG PER DAY
     Route: 048
     Dates: start: 20080401, end: 20080824
  4. HUMULIN [Concomitant]
     Dosage: 12 IU, RE
     Dates: start: 20080819, end: 20080825
  5. NEOPAREN (MIXED AMINO ACID/ CARBOHYDRATE/ ELECTROLYTE/ VITAMINE) [Concomitant]
     Dosage: 1600 ML, RE
     Route: 042
     Dates: start: 20080819, end: 20080824
  6. AMLODIPINE BESYLATE [Concomitant]
     Dosage: 2.5 MG
     Route: 048
     Dates: start: 20080401, end: 20080824
  7. LEVOTHYROXINE SODIUM [Concomitant]
     Dosage: 50 MG
     Route: 048
     Dates: start: 20080401, end: 20080825

REACTIONS (21)
  - ANURIA [None]
  - BLOOD PRESSURE DECREASED [None]
  - CARDIAC ARREST [None]
  - CARDIAC FAILURE [None]
  - CHILLS [None]
  - DEPRESSED LEVEL OF CONSCIOUSNESS [None]
  - GENERALISED OEDEMA [None]
  - MOUTH BREATHING [None]
  - OLIGURIA [None]
  - PAIN [None]
  - PLEURAL EFFUSION [None]
  - PULMONARY CONGESTION [None]
  - PULMONARY EMBOLISM [None]
  - PURPURA [None]
  - PYREXIA [None]
  - RENAL FAILURE [None]
  - RESPIRATORY ARREST [None]
  - RESPIRATORY FAILURE [None]
  - RHONCHI [None]
  - THROMBOTIC THROMBOCYTOPENIC PURPURA [None]
  - WHEEZING [None]
